FAERS Safety Report 4845004-X (Version None)
Quarter: 2005Q4

REPORT INFORMATION
  Report Type: 
  Country: None (occurrence: None)
  Receive Date: 20051202
  Receipt Date: 20051202
  Transmission Date: 20060501
  Serious: No
  Sender: FDA-Public Use
  Company Number: None

PATIENT
  Age: 25 Year
  Sex: Female
  Weight: 96.1626 kg

DRUGS (1)
  1. LEVLEN 28 [Suspect]
     Indication: CONTRACEPTION
     Dosage: 1 TAB 1 PO DAILY PO -ORAL
     Route: 048
     Dates: start: 20051002, end: 20051130

REACTIONS (1)
  - ALOPECIA [None]
